FAERS Safety Report 20429913 (Version 1)
Quarter: 2022Q1

REPORT INFORMATION
  Report Type: Report from Study
  Country: US (occurrence: US)
  Receive Date: 20220204
  Receipt Date: 20220204
  Transmission Date: 20220423
  Serious: Yes (Death, Hospitalization)
  Sender: FDA-Public Use
  Company Number: US-SERVIER-S19000094

PATIENT

DRUGS (18)
  1. ONCASPAR [Suspect]
     Active Substance: PEGASPARGASE
     Indication: Acute lymphocytic leukaemia
     Dosage: 2020 IU (1000IUM2), ONE DOSE
     Route: 042
     Dates: start: 20180522, end: 20180522
  2. ONCASPAR [Suspect]
     Active Substance: PEGASPARGASE
     Dosage: 2020 IU(1000IUM2), ONE DOSE
     Route: 042
     Dates: start: 20180912, end: 20180912
  3. DEXAMETHASONE [Suspect]
     Active Substance: DEXAMETHASONE
     Indication: Acute lymphocytic leukaemia
     Dosage: 40 MG, QD
     Route: 048
     Dates: start: 20180522, end: 20180528
  4. DEXAMETHASONE [Suspect]
     Active Substance: DEXAMETHASONE
     Dosage: 12 MG, QD
     Route: 048
     Dates: start: 20180706, end: 20180717
  5. DEXAMETHASONE [Suspect]
     Active Substance: DEXAMETHASONE
     Dosage: 10 MG, QD
     Route: 048
     Dates: start: 20180905, end: 20180909
  6. DEXAMETHASONE [Suspect]
     Active Substance: DEXAMETHASONE
     Dosage: 4 MG, QD
     Route: 048
     Dates: start: 20180912, end: 20180914
  7. VENETOCLAX [Suspect]
     Active Substance: VENETOCLAX
     Indication: Acute lymphocytic leukaemia
     Dosage: 400 MG, QD
     Route: 048
     Dates: start: 20171205, end: 20170917
  8. NAVITOCLAX [Suspect]
     Active Substance: NAVITOCLAX
     Indication: Acute lymphocytic leukaemia
     Dosage: 21 MG, QD
     Route: 048
     Dates: start: 20171207, end: 20180921
  9. VINCRISTINE SULFATE [Suspect]
     Active Substance: VINCRISTINE SULFATE
     Indication: Acute lymphocytic leukaemia
     Dosage: 2MG/M2, EVERY WEEK
     Route: 042
     Dates: start: 20180525, end: 20180615
  10. VINCRISTINE SULFATE [Suspect]
     Active Substance: VINCRISTINE SULFATE
     Dosage: 1MG/M2, EVERY WEEK
     Route: 042
     Dates: start: 20180706, end: 20180919
  11. NICODERM CQ [Concomitant]
     Active Substance: NICOTINE
     Indication: Nicotine dependence
     Dosage: 7 MG, QD
     Route: 062
     Dates: start: 20151009
  12. SULFAMETHOXAZOLE AND TRIMETHOPRIM [Concomitant]
     Active Substance: SULFAMETHOXAZOLE\TRIMETHOPRIM
     Indication: Infection prophylaxis
     Dosage: 800/160MG
     Route: 048
     Dates: start: 20171209
  13. TN UNSPECIFIED [Concomitant]
     Indication: Anxiety
     Dosage: 50 MG, QD
     Route: 048
     Dates: start: 20180718
  14. ALLOPURINOL DISPENSING SOLUTION [Concomitant]
     Indication: Tumour lysis syndrome
     Dosage: 300 MG, QD
     Route: 048
  15. TN UNSPECIFIED [Concomitant]
     Indication: Infection prophylaxis
     Dosage: 400 MG, 1 IN 8 HOURS
     Route: 048
     Dates: start: 20180912, end: 20180924
  16. TN UNSPECFIED [Concomitant]
     Indication: Schizoaffective disorder
     Dosage: 2 MG, PRN
     Route: 048
     Dates: start: 20180912, end: 20180926
  17. TN UNSPECIFIED [Concomitant]
     Indication: Prophylaxis of nausea and vomiting
     Dosage: 8 MG, PRN
     Route: 048
     Dates: start: 20180912, end: 20180926
  18. TN UNSPECIFIED [Concomitant]
     Dosage: 4 MG, PRN
     Route: 042
     Dates: start: 20180917, end: 20180922

REACTIONS (4)
  - Septic shock [Fatal]
  - Streptococcal bacteraemia [Unknown]
  - Clostridium difficile colitis [Unknown]
  - Diabetic ketoacidosis [Recovered/Resolved]

NARRATIVE: CASE EVENT DATE: 20180916
